FAERS Safety Report 14433677 (Version 1)
Quarter: 2018Q1

REPORT INFORMATION
  Report Type: Report from Study
  Country: JP (occurrence: JP)
  Receive Date: 20180124
  Receipt Date: 20180124
  Transmission Date: 20180509
  Serious: Yes (Hospitalization, Other)
  Sender: FDA-Public Use
  Company Number: JP-GLAXOSMITHKLINE-JP2018JPN005122

PATIENT
  Sex: Male

DRUGS (18)
  1. ABACAVIRSULPHATE+DOLUTEGRAVIR+LAMIVUDINE [Suspect]
     Active Substance: ABACAVIR SULFATE\DOLUTEGRAVIR SODIUM\LAMIVUDINE
     Indication: HIV INFECTION
     Dosage: 1 DF, 1D
     Route: 048
     Dates: start: 20160201, end: 20160222
  2. DAIPHEN [Concomitant]
     Active Substance: SULFAMETHOXAZOLE\TRIMETHOPRIM
     Indication: PNEUMOCYSTIS JIROVECII PNEUMONIA
     Dosage: 3 DF, TID
     Dates: start: 20151201, end: 20151221
  3. DAIPHEN [Concomitant]
     Active Substance: SULFAMETHOXAZOLE\TRIMETHOPRIM
     Dosage: 3 DF, BID
     Dates: start: 20151222, end: 20151223
  4. STRIBILD [Suspect]
     Active Substance: COBICISTAT\ELVITEGRAVIR\EMTRICITABINE\TENOFOVIR DISOPROXIL FUMARATE
     Indication: HIV INFECTION
     Dosage: 1 DF, 1D
     Route: 048
     Dates: start: 20160223, end: 20160807
  5. VALIXA [Concomitant]
     Active Substance: VALGANCICLOVIR
     Indication: CYTOMEGALOVIRUS VIRAEMIA
     Dosage: 900 MG, QD
     Dates: start: 20151208, end: 20160209
  6. ZITHROMAC [Concomitant]
     Active Substance: AZITHROMYCIN DIHYDRATE
     Indication: OPPORTUNISTIC INFECTION PROPHYLAXIS
     Dosage: 1200 MG, WE
     Dates: start: 20151208, end: 20160202
  7. DAIPHEN [Concomitant]
     Active Substance: SULFAMETHOXAZOLE\TRIMETHOPRIM
     Dosage: 1 DF, QD
     Dates: start: 20160106, end: 20160318
  8. EPIVIR [Concomitant]
     Active Substance: LAMIVUDINE
     Indication: HIV INFECTION
     Dosage: 150 MG, 1D
     Dates: start: 20160907, end: 20161018
  9. ISENTRESS [Concomitant]
     Active Substance: RALTEGRAVIR POTASSIUM
     Indication: HIV INFECTION
     Dosage: 800 MG, 1D
     Dates: start: 20160907, end: 20161018
  10. PREDONINE [Concomitant]
     Active Substance: PREDNISOLONE
     Indication: PNEUMOCYSTIS JIROVECII PNEUMONIA
     Dosage: 60 MG, QD
     Route: 048
     Dates: start: 20151208, end: 20161208
  11. ATOVAQUONE. [Suspect]
     Active Substance: ATOVAQUONE
     Indication: PNEUMOCYSTIS JIROVECII PNEUMONIA
     Dosage: 750 MG, BID
     Route: 048
     Dates: start: 20151224, end: 20160105
  12. SOL-MELCORT [Concomitant]
     Active Substance: METHYLPREDNISOLONE SODIUM SUCCINATE
     Indication: PNEUMOCYSTIS JIROVECII PNEUMONIA
     Dosage: UNK G, UNK
     Dates: start: 20151130, end: 20151222
  13. ZIAGEN [Concomitant]
     Active Substance: ABACAVIR SULFATE
     Indication: HIV INFECTION
     Dosage: 300 MG, BID
     Dates: start: 20160907, end: 20161018
  14. CLARITH [Concomitant]
     Active Substance: CLARITHROMYCIN
     Indication: OPPORTUNISTIC INFECTION PROPHYLAXIS
     Dosage: UNK
     Dates: start: 20160317, end: 20161018
  15. GENVOYA [Concomitant]
     Active Substance: COBICISTAT\ELVITEGRAVIR\EMTRICITABINE\TENOFOVIR ALAFENAMIDE FUMARATE
     Indication: HIV INFECTION
     Dosage: 1 DF, 1D
     Dates: start: 20160808, end: 20160906
  16. PREDONINE [Concomitant]
     Active Substance: PREDNISOLONE
     Dosage: UNK, QD
     Dates: start: 20151223, end: 20160310
  17. BENAMBAX [Concomitant]
     Active Substance: PENTAMIDINE
     Indication: ANTIFUNGAL PROPHYLAXIS
     Dosage: 300 MG, UNK
     Dates: start: 20160331, end: 20161018
  18. BENET [Concomitant]
     Active Substance: RISEDRONATE SODIUM
     Indication: OSTEOPOROSIS
     Dosage: 75 MG, UNK
     Dates: start: 20160704, end: 20160905

REACTIONS (2)
  - Renal tubular disorder [Not Recovered/Not Resolved]
  - Liver disorder [Recovered/Resolved]

NARRATIVE: CASE EVENT DATE: 20160105
